FAERS Safety Report 16304561 (Version 1)
Quarter: 2019Q2

REPORT INFORMATION
  Report Type: Spontaneous
  Country: US (occurrence: US)
  Receive Date: 20190510
  Receipt Date: 20190510
  Transmission Date: 20190711
  Serious: No
  Sender: FDA-Public Use
  Company Number: None

PATIENT
  Age: 37 Year
  Sex: Female
  Weight: 67.5 kg

DRUGS (15)
  1. PRO AIR INHALER [Concomitant]
  2. WHEAT GRASS JUICE [Concomitant]
  3. CRUCIFEROUS VEGETABLE CAPSULE SUPPLEMENT [Concomitant]
  4. B VITAMINS [Concomitant]
     Active Substance: CYANOCOBALAMIN\DEXPANTHENOL\NIACINAMIDE\PYRIDOXINE HYDROCHLORIDE\RIBOFLAVIN 5^-PHOSPHATE SODIUM\THIAMINE HYDROCHLORIDE\VITAMIN B COMPLEX
  5. HYDROCODONE [Concomitant]
     Active Substance: HYDROCODONE
  6. VITAMIN D3 + K2 [Concomitant]
  7. AIMOVIG [Suspect]
     Active Substance: ERENUMAB-AOOE
     Indication: MIGRAINE
     Dosage: ?          QUANTITY:2 INJECTION(S);OTHER FREQUENCY:ONCE A MONTH;OTHER ROUTE:SHOT INJECTION?
  8. AMLODIPINE BESYLATE. [Concomitant]
     Active Substance: AMLODIPINE BESYLATE
  9. IRON [Concomitant]
     Active Substance: IRON
  10. VITAMIN C [Concomitant]
     Active Substance: ASCORBIC ACID
  11. TRACE MINERAL SUPPLEMENT [Concomitant]
  12. IMITREX [Concomitant]
     Active Substance: SUMATRIPTAN SUCCINATE
  13. FLONASE [Concomitant]
     Active Substance: FLUTICASONE PROPIONATE
  14. SINGULAIR [Concomitant]
     Active Substance: MONTELUKAST SODIUM
  15. POTASSIUM/MAGNEISUM ELECTROLYTE DRINK MIX [Concomitant]

REACTIONS (13)
  - Depression [None]
  - Abnormal dreams [None]
  - Treatment failure [None]
  - Arthralgia [None]
  - Anxiety [None]
  - Tremor [None]
  - Nausea [None]
  - Fatigue [None]
  - Dyspnoea [None]
  - Migraine [None]
  - Back pain [None]
  - Dizziness [None]
  - Abdominal pain upper [None]

NARRATIVE: CASE EVENT DATE: 20190423
